FAERS Safety Report 7792209-4 (Version None)
Quarter: 2011Q4

REPORT INFORMATION
  Report Type: 
  Country: None (occurrence: None)
  Receive Date: 20111003
  Receipt Date: 20111003
  Transmission Date: 20120403
  Serious: Yes (Hospitalization, Other)
  Sender: FDA-Public Use
  Company Number: None

PATIENT
  Age: 9 Year
  Sex: Male
  Weight: 32.205 kg

DRUGS (1)
  1. ABILIFY [Suspect]
     Indication: ASPERGER'S DISORDER
     Dosage: 7.5 MG
     Route: 048
     Dates: start: 20110601, end: 20110928

REACTIONS (3)
  - DYSKINESIA [None]
  - AGGRESSION [None]
  - DYSTONIA [None]
